FAERS Safety Report 14343549 (Version 6)
Quarter: 2019Q1

REPORT INFORMATION
  Report Type: Spontaneous
  Country: GB (occurrence: GB)
  Receive Date: 20180102
  Receipt Date: 20190320
  Transmission Date: 20190417
  Serious: Yes (Hospitalization, Other)
  Sender: FDA-Public Use
  Company Number: GB-MYLANLABS-2017M1083540

PATIENT
  Age: 64 Year
  Sex: Male

DRUGS (8)
  1. RITUXIMAB. [Suspect]
     Active Substance: RITUXIMAB
     Indication: LYMPHOMA
     Dosage: UNK UNK, CYCLE
     Route: 065
  2. VALGANCICLOVIR. [Suspect]
     Active Substance: VALGANCICLOVIR
     Indication: CYTOMEGALOVIRUS COLITIS
     Dosage: 900 MILLIGRAM, QD
     Route: 048
  3. VALGANCICLOVIR. [Suspect]
     Active Substance: VALGANCICLOVIR
     Dosage: 1800 MILLIGRAM, QD
     Route: 048
  4. GANCICLOVIR. [Suspect]
     Active Substance: GANCICLOVIR
     Indication: CYTOMEGALOVIRUS COLITIS
     Dosage: 5 MILLIGRAM/KILOGRAM
     Route: 065
  5. VALGANCICLOVIR. [Suspect]
     Active Substance: VALGANCICLOVIR
     Dosage: 900 MILLIGRAM, QD
     Route: 048
  6. VALGANCICLOVIR. [Suspect]
     Active Substance: VALGANCICLOVIR
     Dosage: 450 MILLIGRAM, QD
     Route: 048
  7. RITUXIMAB. [Suspect]
     Active Substance: RITUXIMAB
     Indication: B-CELL LYMPHOMA
  8. BENDAMUSTINE HYDROCHLORIDE. [Suspect]
     Active Substance: BENDAMUSTINE HYDROCHLORIDE
     Indication: B-CELL LYMPHOMA
     Dosage: UNK UNK, CYCLE
     Route: 042

REACTIONS (8)
  - Diarrhoea [Recovering/Resolving]
  - Bone marrow failure [Unknown]
  - Pyrexia [Unknown]
  - Cytomegalovirus colitis [Recovering/Resolving]
  - Hepatic function abnormal [Unknown]
  - Pneumocystis jirovecii pneumonia [Recovered/Resolved]
  - Abdominal pain lower [Recovering/Resolving]
  - Cytomegalovirus infection [Unknown]

NARRATIVE: CASE EVENT DATE: 20171221
